FAERS Safety Report 8916994 (Version 1)
Quarter: 2012Q4

REPORT INFORMATION
  Report Type: 
  Country: US (occurrence: US)
  Receive Date: 20121120
  Receipt Date: 20121120
  Transmission Date: 20130627
  Serious: Yes (Death)
  Sender: FDA-Public Use
  Company Number: US-BRISTOL-MYERS SQUIBB COMPANY-17138546

PATIENT
  Age: 60 Year
  Sex: Male

DRUGS (1)
  1. ABILIFY TABS 5 MG [Suspect]

REACTIONS (1)
  - Death [Fatal]
